FAERS Safety Report 5469634-X (Version None)
Quarter: 2007Q3

REPORT INFORMATION
  Report Type: 
  Country: None (occurrence: None)
  Receive Date: 20070926
  Receipt Date: 20070926
  Transmission Date: 20080115
  Serious: Yes (Other)
  Sender: FDA-Public Use
  Company Number: None

PATIENT
  Age: 51 Year
  Sex: Female
  Weight: 81.6475 kg

DRUGS (1)
  1. ZICAM ZICAM LLC/MATRIXX INITIATIVES INC [Suspect]
     Indication: NASOPHARYNGITIS
     Dosage: 1 SWAB EVERY 4 HOURS 48 HRS AFTER SYMPT NASAL
     Route: 045
     Dates: start: 20070510, end: 20070513

REACTIONS (2)
  - AGEUSIA [None]
  - ANOSMIA [None]
